FAERS Safety Report 11375261 (Version 1)
Quarter: 2015Q3

REPORT INFORMATION
  Report Type: Report from Study
  Country: DE (occurrence: DE)
  Receive Date: 20150813
  Receipt Date: 20150813
  Transmission Date: 20151125
  Serious: Yes (Hospitalization)
  Sender: FDA-Public Use
  Company Number: DE-BIOGENIDEC-2015BI109427

PATIENT
  Age: 46 Year
  Sex: Male
  Weight: 115 kg

DRUGS (2)
  1. PLEGRIDY [Suspect]
     Active Substance: PEGINTERFERON BETA-1A
     Indication: MULTIPLE SCLEROSIS
     Route: 058
     Dates: start: 20150424, end: 20150717
  2. FAMPYRA [Concomitant]
     Active Substance: DALFAMPRIDINE
     Dates: start: 201410, end: 201507

REACTIONS (2)
  - Back pain [Recovered/Resolved]
  - Eczema [Not Recovered/Not Resolved]
